FAERS Safety Report 9736399 (Version 1)
Quarter: 2013Q4

REPORT INFORMATION
  Report Type: Spontaneous
  Country: FR (occurrence: FR)
  Receive Date: 20131206
  Receipt Date: 20131206
  Transmission Date: 20140711
  Serious: Yes (Life-Threatening)
  Sender: FDA-Public Use
  Company Number: FR-ASTRAZENECA-2013SE88835

PATIENT
  Age: 36 Year
  Sex: Male
  Weight: 60 kg

DRUGS (3)
  1. ESOMEPRAZOLE [Suspect]
     Route: 048
  2. VORICONAZOLE [Interacting]
     Indication: PULMONARY MASS
     Route: 042
  3. VORICONAZOLE [Interacting]
     Indication: PULMONARY MASS
     Route: 042

REACTIONS (6)
  - Drug interaction [Unknown]
  - Toxicity to various agents [Recovered/Resolved]
  - Coma [Recovered/Resolved]
  - Hallucination, auditory [Recovered/Resolved]
  - Hallucination, visual [Recovered/Resolved]
  - Skin lesion [Unknown]
